FAERS Safety Report 8508561-8 (Version None)
Quarter: 2012Q3

REPORT INFORMATION
  Report Type: 
  Country: None (occurrence: None)
  Receive Date: 20120713
  Receipt Date: 20120710
  Transmission Date: 20120928
  Serious: Yes (Other)
  Sender: FDA-Public Use
  Company Number: PHHY2012DE042590

PATIENT
  Sex: Male
  Weight: 128 kg

DRUGS (6)
  1. ZOLEDRONOC ACID [Suspect]
     Dosage: 4 MG/5ML MONTHLY
     Route: 042
  2. INSULIN [Concomitant]
     Dosage: UNK
     Dates: start: 20070101
  3. PRAVASTATIN [Concomitant]
     Dosage: 40 MG, DAILY
     Dates: start: 20050101
  4. ZOLEDRONOC ACID [Suspect]
     Indication: METASTASES TO BONE
     Dosage: 4 MG/5ML MONTHLY
     Route: 042
     Dates: start: 20110504
  5. MARCUMAR [Concomitant]
     Dosage: 1.5 DF, DAILY
     Dates: start: 19990101
  6. METFORMIN HYDROCHLORIDE [Concomitant]
     Dosage: 1300 MG, DAILY
     Dates: start: 20000101

REACTIONS (7)
  - SOFT TISSUE INFECTION [None]
  - ERYTHEMA [None]
  - SWELLING [None]
  - OSTEONECROSIS OF JAW [None]
  - OPEN WOUND [None]
  - EXPOSED BONE IN JAW [None]
  - FISTULA [None]
